FAERS Safety Report 20741521 (Version 1)
Quarter: 2022Q2

REPORT INFORMATION
  Report Type: Report from Study
  Country: US (occurrence: US)
  Receive Date: 20220422
  Receipt Date: 20220422
  Transmission Date: 20220721
  Serious: Yes (Hospitalization)
  Sender: FDA-Public Use
  Company Number: US-AURINIA PHARMACEUTICALS INC.-AUR-001375

PATIENT
  Sex: Female

DRUGS (1)
  1. LUPKYNIS [Suspect]
     Active Substance: VOCLOSPORIN
     Indication: Product used for unknown indication
     Dosage: 15.8 MILLIGRAM QAM AND 7.9 MILLIGRAM QPM
     Route: 048
     Dates: start: 20211127

REACTIONS (2)
  - Diverticulitis [Unknown]
  - Herpes zoster [Unknown]
